FAERS Safety Report 6209851-4 (Version None)
Quarter: 2009Q2

REPORT INFORMATION
  Report Type: 
  Country: None (occurrence: None)
  Receive Date: 20090527
  Receipt Date: 20090520
  Transmission Date: 20091009
  Serious: Yes (Hospitalization)
  Sender: FDA-Public Use
  Company Number: 2009SP002657

PATIENT
  Age: 55 Year
  Sex: Male

DRUGS (6)
  1. PEG-INTRON [Suspect]
     Indication: HEPATITIS C
     Dosage: 100 MCG; QW; SC, 50 MCG; QW; SC
     Route: 058
     Dates: start: 20080513, end: 20080526
  2. PEG-INTRON [Suspect]
     Indication: HEPATITIS C
     Dosage: 100 MCG; QW; SC, 50 MCG; QW; SC
     Route: 058
     Dates: start: 20080527
  3. REBETOL [Suspect]
     Indication: HEPATITIS C
     Dosage: 1000 MG; QD; PO
     Route: 048
     Dates: start: 20080513
  4. ELTROMBOPAG      (ELTROMBOPAG) [Suspect]
     Indication: THROMBOCYTOPENIA
     Dosage: 25 MG; QD; PO
     Route: 048
     Dates: start: 20080429, end: 20080512
  5. BLINDED ELTROMBOPAG    (ELTROMBOPAG) [Suspect]
     Indication: THROMBOCYTOPENIA
     Dosage: 1 DF; QD; PO, 100 MG; QD; PO
     Route: 048
     Dates: start: 20080513, end: 20080708
  6. BLINDED ELTROMBOPAG    (ELTROMBOPAG) [Suspect]
     Indication: THROMBOCYTOPENIA
     Dosage: 1 DF; QD; PO, 100 MG; QD; PO
     Route: 048
     Dates: start: 20080709

REACTIONS (7)
  - ASCITES [None]
  - BLOOD BILIRUBIN ABNORMAL [None]
  - HAEMOGLOBIN DECREASED [None]
  - NEUTROPHIL COUNT DECREASED [None]
  - RED BLOOD CELL COUNT DECREASED [None]
  - SPLENOMEGALY [None]
  - WHITE BLOOD CELL COUNT DECREASED [None]
